FAERS Safety Report 6921985-5 (Version None)
Quarter: 2010Q3

REPORT INFORMATION
  Report Type: 
  Country: None (occurrence: None)
  Receive Date: 20100812
  Receipt Date: 20100729
  Transmission Date: 20110219
  Serious: Yes (Hospitalization, Other)
  Sender: FDA-Public Use
  Company Number: PHHY2010NO45555

PATIENT
  Sex: Female

DRUGS (34)
  1. TEGRETOL [Suspect]
     Indication: EPILEPSY
     Dosage: UNK
  2. TEGRETOL [Suspect]
     Indication: EPILEPSY
     Dosage: 1200 MG/DAY
  3. TEGRETOL [Suspect]
     Dosage: 1700 MG/DAY
     Dates: start: 19910528, end: 19910812
  4. TRILEPTAL [Suspect]
     Indication: EPILEPSY
     Dosage: 2100 MG (900 MG + 1200 MG)
     Dates: start: 19910812
  5. TRILEPTAL [Suspect]
     Dosage: 3300 MG (1200 MG+900MG+1200MG)
  6. TRILEPTAL [Suspect]
     Dosage: 3000MG
  7. TRILEPTAL [Suspect]
     Dosage: 1800 MG
     Dates: end: 20010926
  8. LAMICTAL [Suspect]
     Indication: EPILEPSY
     Dosage: 125 MG
     Dates: start: 19930513
  9. LAMICTAL [Suspect]
     Dosage: 150 MG
     Dates: start: 19930801
  10. LAMICTAL [Suspect]
     Dosage: 175 MG
  11. LAMICTAL [Suspect]
     Dosage: 275 MG, TID
     Dates: start: 19950501
  12. LAMICTAL [Suspect]
     Dosage: 200 MG
     Dates: start: 19960601
  13. LAMICTAL [Suspect]
     Dosage: 250 MG
     Dates: start: 19960801
  14. LAMICTAL [Suspect]
     Dosage: 400 MG
     Dates: start: 20001011
  15. LAMICTAL [Suspect]
     Dosage: 300 MG
     Dates: start: 20040201
  16. VALPROATE SODIUM [Suspect]
     Indication: EPILEPSY
     Dosage: UNK
     Dates: start: 19930513
  17. VALPROATE SODIUM [Suspect]
     Dosage: 1200 MG
     Dates: start: 19960605, end: 19960626
  18. RIVOTRIL [Concomitant]
     Indication: EPILEPSY
     Dosage: 2+2 MG
  19. RIVOTRIL [Concomitant]
     Dosage: 1+1 MG
     Dates: start: 19960801
  20. ROHPINOL [Concomitant]
     Indication: SLEEP DISORDER
  21. NOZINAN [Concomitant]
     Dosage: 5 MG AT NIGHT
     Dates: start: 19930301
  22. VIVAL [Concomitant]
     Indication: CONVULSION
     Dosage: 10 MG
     Dates: start: 19930101
  23. EPINAT [Concomitant]
     Indication: EPILEPSY
     Dosage: 300 MG
     Dates: end: 19930406
  24. ZYRTEC [Concomitant]
     Dosage: 1-2 TABLETS AT NIGHT
  25. PAROXETINE HCL [Concomitant]
     Indication: ANXIETY
  26. PAROXETINE HCL [Concomitant]
     Indication: DEPRESSION
  27. CIPRAMIL [Concomitant]
     Indication: TENSION
     Dosage: 1 TABLET AT NIGHT
     Dates: start: 19960815
  28. LEVOTHYROXINE SODIUM [Concomitant]
     Dosage: 0,05 MG TO 0,15 MG
     Dates: start: 19960101
  29. DIAMOX SRC [Concomitant]
     Indication: EPILEPSY
     Dosage: UNK
     Dates: start: 19990201
  30. BRICANYL [Concomitant]
  31. RHINOCORT [Concomitant]
  32. SEREVENT [Concomitant]
  33. PULMICORT [Concomitant]
  34. LIVOSTIN [Concomitant]

REACTIONS (40)
  - ABDOMINAL PAIN LOWER [None]
  - ALOPECIA [None]
  - AMENORRHOEA [None]
  - ANXIETY [None]
  - ARTHRITIS [None]
  - ASTHMA [None]
  - BACK PAIN [None]
  - BLOOD SODIUM DECREASED [None]
  - CONSTIPATION [None]
  - DECREASED APPETITE [None]
  - DEPRESSION [None]
  - DIPLOPIA [None]
  - DIZZINESS [None]
  - DRUG INEFFECTIVE [None]
  - DYSPHAGIA [None]
  - EAR INFECTION [None]
  - EATING DISORDER [None]
  - FATIGUE [None]
  - GENERALISED OEDEMA [None]
  - GINGIVAL HYPERPLASIA [None]
  - HEADACHE [None]
  - HEPATIC ENZYME INCREASED [None]
  - HYPERSENSITIVITY [None]
  - INSOMNIA [None]
  - LISTLESS [None]
  - MEMORY IMPAIRMENT [None]
  - MYALGIA [None]
  - NAUSEA [None]
  - OEDEMA PERIPHERAL [None]
  - PANIC ATTACK [None]
  - PETECHIAE [None]
  - PHOTOSENSITIVITY REACTION [None]
  - PRURITUS [None]
  - RASH PRURITIC [None]
  - SOMNOLENCE [None]
  - STATUS EPILEPTICUS [None]
  - SUICIDE ATTEMPT [None]
  - SWELLING [None]
  - TOOTH DISORDER [None]
  - WEIGHT INCREASED [None]
